FAERS Safety Report 5409109-7 (Version None)
Quarter: 2007Q3

REPORT INFORMATION
  Report Type: 
  Country: None (occurrence: None)
  Receive Date: 20070808
  Receipt Date: 20070808
  Transmission Date: 20080115
  Serious: Yes (Disabling)
  Sender: FDA-Public Use
  Company Number: TR-BRISTOL-MYERS SQUIBB COMPANY-13871389

PATIENT
  Age: 14 Year
  Sex: Male

DRUGS (1)
  1. BLEOMYCIN [Suspect]
     Indication: CRANIOPHARYNGIOMA

REACTIONS (6)
  - AMAUROSIS [None]
  - BLINDNESS [None]
  - BRAIN OEDEMA [None]
  - COMPLEX PARTIAL SEIZURES [None]
  - EPILEPSY [None]
  - HEMIANOPIA [None]
